FAERS Safety Report 6963756-X (Version None)
Quarter: 2010Q3

REPORT INFORMATION
  Report Type: 
  Country: None (occurrence: None)
  Receive Date: 20100902
  Receipt Date: 20100823
  Transmission Date: 20110219
  Serious: Yes (Other)
  Sender: FDA-Public Use
  Company Number: PL-BAXTER-2010BH022152

PATIENT
  Age: 11 Year
  Sex: Female
  Weight: 49 kg

DRUGS (2)
  1. DEXTRAN 40 10% IN SODIUM CHLORIDE 0.9% [Suspect]
     Indication: HYPOVOLAEMIA
     Route: 042
     Dates: start: 20100510, end: 20100510
  2. DEXTRAN 40 10% IN SODIUM CHLORIDE 0.9% [Suspect]
     Route: 042
     Dates: start: 20100101

REACTIONS (4)
  - ABDOMINAL PAIN UPPER [None]
  - CHEST PAIN [None]
  - PRURITUS [None]
  - RASH [None]
